FAERS Safety Report 7433382-7 (Version None)
Quarter: 2011Q2

REPORT INFORMATION
  Report Type: 
  Country: None (occurrence: None)
  Receive Date: 20110422
  Receipt Date: 20110412
  Transmission Date: 20111010
  Serious: Yes (Death)
  Sender: FDA-Public Use
  Company Number: RO-GENZYME-CERZ-1002012

PATIENT
  Sex: Female
  Weight: 74 kg

DRUGS (6)
  1. SPIRONOLACTONA ALTER [Concomitant]
     Indication: PRODUCT USED FOR UNKNOWN INDICATION
     Dosage: 150 MG, QD
  2. FUROSEMID [Concomitant]
     Indication: PRODUCT USED FOR UNKNOWN INDICATION
     Dosage: 40 MG, QD
  3. NEXIUM [Concomitant]
     Indication: PRODUCT USED FOR UNKNOWN INDICATION
     Dosage: 40 MG, QD
  4. ARGININA SORBITOL [Concomitant]
     Indication: PRODUCT USED FOR UNKNOWN INDICATION
     Dosage: 1 FL, QD
  5. CEREZYME [Suspect]
     Indication: GAUCHER'S DISEASE
     Dosage: 2000 U, UNK
  6. LACTULOSE [Concomitant]
     Indication: PRODUCT USED FOR UNKNOWN INDICATION
     Dosage: 3 UNK, QD

REACTIONS (1)
  - HEPATIC ENCEPHALOPATHY [None]
